FAERS Safety Report 5450897-1 (Version None)
Quarter: 2007Q3

REPORT INFORMATION
  Report Type: 
  Country: None (occurrence: None)
  Receive Date: 20070911
  Receipt Date: 20070830
  Transmission Date: 20080115
  Serious: Yes (Hospitalization)
  Sender: FDA-Public Use
  Company Number: 2007BI010596

PATIENT
  Age: 55 Year
  Sex: Female
  Weight: 86.1834 kg

DRUGS (9)
  1. AVONEX [Suspect]
     Indication: MULTIPLE SCLEROSIS
     Dosage: 30 UG; QW; IM
     Route: 030
     Dates: start: 20020909
  2. MOTRIN [Concomitant]
  3. VICODIN [Concomitant]
  4. PROVIGIL [Concomitant]
  5. BACLOFEN [Concomitant]
  6. MUSINEX [Concomitant]
  7. ALPRAZOLAM [Concomitant]
  8. DECADRON [Concomitant]
  9. BENAZEPRIL HYDROCHLORIDE [Concomitant]

REACTIONS (11)
  - BRAIN NEOPLASM [None]
  - CHEST PAIN [None]
  - DYSPNOEA EXERTIONAL [None]
  - GAIT DISTURBANCE [None]
  - HYPERTENSION [None]
  - HYPOREFLEXIA [None]
  - MENINGIOMA [None]
  - MENTAL DISORDER [None]
  - POSTICTAL PARALYSIS [None]
  - SLEEP APNOEA SYNDROME [None]
  - STATUS EPILEPTICUS [None]
